FAERS Safety Report 25331263 (Version 1)
Quarter: 2025Q2

REPORT INFORMATION
  Report Type: Spontaneous
  Country: AT (occurrence: AT)
  Receive Date: 20250519
  Receipt Date: 20250519
  Transmission Date: 20250716
  Serious: Yes (Life-Threatening, Hospitalization, Other)
  Sender: MYLAN
  Company Number: AT-AMGEN-AUTSP2025084955

PATIENT
  Age: 80 Year
  Sex: Male

DRUGS (48)
  1. POMALIDOMIDE [Suspect]
     Active Substance: POMALIDOMIDE
     Indication: Plasma cell myeloma refractory
  2. POMALIDOMIDE [Suspect]
     Active Substance: POMALIDOMIDE
     Route: 065
  3. POMALIDOMIDE [Suspect]
     Active Substance: POMALIDOMIDE
     Route: 065
  4. POMALIDOMIDE [Suspect]
     Active Substance: POMALIDOMIDE
  5. KYPROLIS [Suspect]
     Active Substance: CARFILZOMIB
     Indication: Plasma cell myeloma refractory
  6. KYPROLIS [Suspect]
     Active Substance: CARFILZOMIB
  7. KYPROLIS [Suspect]
     Active Substance: CARFILZOMIB
     Route: 065
  8. KYPROLIS [Suspect]
     Active Substance: CARFILZOMIB
     Route: 065
  9. KYPROLIS [Suspect]
     Active Substance: CARFILZOMIB
  10. KYPROLIS [Suspect]
     Active Substance: CARFILZOMIB
  11. KYPROLIS [Suspect]
     Active Substance: CARFILZOMIB
     Route: 065
  12. KYPROLIS [Suspect]
     Active Substance: CARFILZOMIB
     Route: 065
  13. DEXAMETHASONE [Suspect]
     Active Substance: DEXAMETHASONE
     Indication: Plasma cell myeloma refractory
  14. DEXAMETHASONE [Suspect]
     Active Substance: DEXAMETHASONE
  15. DEXAMETHASONE [Suspect]
     Active Substance: DEXAMETHASONE
     Route: 065
  16. DEXAMETHASONE [Suspect]
     Active Substance: DEXAMETHASONE
     Route: 065
  17. DEXAMETHASONE [Suspect]
     Active Substance: DEXAMETHASONE
  18. DEXAMETHASONE [Suspect]
     Active Substance: DEXAMETHASONE
  19. DEXAMETHASONE [Suspect]
     Active Substance: DEXAMETHASONE
     Route: 065
  20. DEXAMETHASONE [Suspect]
     Active Substance: DEXAMETHASONE
     Route: 065
  21. DARATUMUMAB [Suspect]
     Active Substance: DARATUMUMAB
     Indication: Plasma cell myeloma refractory
  22. DARATUMUMAB [Suspect]
     Active Substance: DARATUMUMAB
  23. DARATUMUMAB [Suspect]
     Active Substance: DARATUMUMAB
     Route: 065
  24. DARATUMUMAB [Suspect]
     Active Substance: DARATUMUMAB
     Route: 065
  25. DARATUMUMAB [Suspect]
     Active Substance: DARATUMUMAB
  26. DARATUMUMAB [Suspect]
     Active Substance: DARATUMUMAB
  27. DARATUMUMAB [Suspect]
     Active Substance: DARATUMUMAB
     Route: 065
  28. DARATUMUMAB [Suspect]
     Active Substance: DARATUMUMAB
     Route: 065
  29. DARATUMUMAB [Suspect]
     Active Substance: DARATUMUMAB
  30. DARATUMUMAB [Suspect]
     Active Substance: DARATUMUMAB
     Route: 065
  31. DARATUMUMAB [Suspect]
     Active Substance: DARATUMUMAB
  32. DARATUMUMAB [Suspect]
     Active Substance: DARATUMUMAB
     Route: 065
  33. VELCADE [Suspect]
     Active Substance: BORTEZOMIB
     Indication: Plasma cell myeloma refractory
  34. VELCADE [Suspect]
     Active Substance: BORTEZOMIB
     Route: 065
  35. VELCADE [Suspect]
     Active Substance: BORTEZOMIB
     Route: 065
  36. VELCADE [Suspect]
     Active Substance: BORTEZOMIB
  37. CYCLOPHOSPHAMIDE [Suspect]
     Active Substance: CYCLOPHOSPHAMIDE
     Indication: Plasma cell myeloma refractory
  38. CYCLOPHOSPHAMIDE [Suspect]
     Active Substance: CYCLOPHOSPHAMIDE
     Route: 065
  39. CYCLOPHOSPHAMIDE [Suspect]
     Active Substance: CYCLOPHOSPHAMIDE
     Route: 065
  40. CYCLOPHOSPHAMIDE [Suspect]
     Active Substance: CYCLOPHOSPHAMIDE
  41. ELOTUZUMAB [Suspect]
     Active Substance: ELOTUZUMAB
     Indication: Plasma cell myeloma refractory
  42. ELOTUZUMAB [Suspect]
     Active Substance: ELOTUZUMAB
     Route: 065
  43. ELOTUZUMAB [Suspect]
     Active Substance: ELOTUZUMAB
     Route: 065
  44. ELOTUZUMAB [Suspect]
     Active Substance: ELOTUZUMAB
  45. MEZIGDOMIDE [Suspect]
     Active Substance: MEZIGDOMIDE
     Indication: Plasma cell myeloma refractory
  46. MEZIGDOMIDE [Suspect]
     Active Substance: MEZIGDOMIDE
     Route: 065
  47. MEZIGDOMIDE [Suspect]
     Active Substance: MEZIGDOMIDE
     Route: 065
  48. MEZIGDOMIDE [Suspect]
     Active Substance: MEZIGDOMIDE

REACTIONS (7)
  - Pneumonia [Unknown]
  - COVID-19 [Unknown]
  - Pyrexia [Unknown]
  - Infection [Unknown]
  - Delirium [Unknown]
  - Plasma cell myeloma refractory [Unknown]
  - Off label use [Unknown]

NARRATIVE: CASE EVENT DATE: 20211101
